FAERS Safety Report 19958896 (Version 1)
Quarter: 2021Q4

REPORT INFORMATION
  Report Type: Spontaneous
  Country: US (occurrence: US)
  Receive Date: 20211012
  Receipt Date: 20211012
  Transmission Date: 20220303
  Serious: No
  Sender: FDA-Public Use
  Company Number: None

PATIENT

DRUGS (4)
  1. TOCILIZUMAB [Suspect]
     Active Substance: TOCILIZUMAB
  2. ACTEMRA [Suspect]
     Active Substance: TOCILIZUMAB
  3. DEVICE [Suspect]
     Active Substance: DEVICE
  4. ACTEMRA ACTPEN [Suspect]
     Active Substance: TOCILIZUMAB

REACTIONS (3)
  - Device dispensing error [None]
  - Drug monitoring procedure not performed [None]
  - Drug administered in wrong device [None]
